FAERS Safety Report 16070411 (Version 1)
Quarter: 2019Q1

REPORT INFORMATION
  Report Type: Spontaneous
  Country: GB (occurrence: GB)
  Receive Date: 20190314
  Receipt Date: 20190314
  Transmission Date: 20190418
  Serious: Yes (Other)
  Sender: FDA-Public Use
  Company Number: GB-TEVA-2019-GB-1023141

PATIENT
  Age: 43 Year
  Sex: Female
  Weight: 63.5 kg

DRUGS (1)
  1. QUETIAPINE. [Suspect]
     Active Substance: QUETIAPINE
     Indication: INSOMNIA
     Dosage: 25-50MG
     Route: 048
     Dates: start: 20181113, end: 20190207

REACTIONS (5)
  - Hyporeflexia [Recovering/Resolving]
  - Crying [Recovering/Resolving]
  - Obsessive thoughts [Recovering/Resolving]
  - Abnormal weight gain [Recovering/Resolving]
  - Skin abrasion [Recovered/Resolved with Sequelae]
